FAERS Safety Report 6756435-5 (Version None)
Quarter: 2010Q2

REPORT INFORMATION
  Report Type: 
  Country: None (occurrence: None)
  Receive Date: 20100604
  Receipt Date: 20100528
  Transmission Date: 20101027
  Serious: Yes (Hospitalization)
  Sender: FDA-Public Use
  Company Number: A0861992A

PATIENT
  Age: 50 Year
  Sex: Female

DRUGS (3)
  1. TYKERB [Suspect]
     Indication: BREAST CANCER
     Dosage: 1250MG PER DAY
     Route: 048
     Dates: start: 20100219, end: 20100501
  2. XELODA [Suspect]
     Indication: BREAST CANCER
     Dosage: 2000MG TWICE PER DAY
     Route: 048
     Dates: start: 20100219, end: 20100501
  3. NO CONCURRENT MEDICATION [Concomitant]

REACTIONS (2)
  - DISEASE PROGRESSION [None]
  - HOSPICE CARE [None]
